FAERS Safety Report 7270829-3 (Version None)
Quarter: 2011Q1

REPORT INFORMATION
  Report Type: 
  Country: None (occurrence: None)
  Receive Date: 20110202
  Receipt Date: 20110124
  Transmission Date: 20110831
  Serious: Yes (Other)
  Sender: FDA-Public Use
  Company Number: FR-CEPHALON-2011000391

PATIENT
  Age: 83 Year
  Sex: Male

DRUGS (5)
  1. FENTANYL CITRATE [Suspect]
     Route: 002
     Dates: start: 20110121
  2. LEXOMIL [Concomitant]
  3. FENTANYL CITRATE [Suspect]
     Indication: CANCER PAIN
     Route: 002
     Dates: start: 20110119, end: 20110120
  4. DURAGESIC-100 [Suspect]
     Indication: CANCER PAIN
     Route: 062
     Dates: start: 20110111, end: 20110116
  5. DURAGESIC-100 [Suspect]
     Route: 062
     Dates: start: 20110117

REACTIONS (4)
  - AGGRESSION [None]
  - SOMNOLENCE [None]
  - DRUG PRESCRIBING ERROR [None]
  - DRUG INEFFECTIVE [None]
